FAERS Safety Report 6507132-2 (Version None)
Quarter: 2009Q4

REPORT INFORMATION
  Report Type: 
  Country: None (occurrence: None)
  Receive Date: 20091221
  Receipt Date: 20091211
  Transmission Date: 20100525
  Serious: Yes (Death)
  Sender: FDA-Public Use
  Company Number: PE-JNJFOC-20091204553

PATIENT
  Age: 62 Year
  Sex: Male

DRUGS (2)
  1. REMICADE [Suspect]
     Route: 042
     Dates: start: 20090421, end: 20090903
  2. REMICADE [Suspect]
     Indication: CROHN'S DISEASE
     Route: 042
     Dates: start: 20090421, end: 20090903

REACTIONS (5)
  - DEATH [None]
  - DIALYSIS [None]
  - PLEURAL EFFUSION [None]
  - PNEUMONIA [None]
  - TRACHEOBRONCHITIS [None]
